FAERS Safety Report 13087365 (Version 1)
Quarter: 2017Q1

REPORT INFORMATION
  Report Type: Spontaneous
  Country: US (occurrence: US)
  Receive Date: 20170105
  Receipt Date: 20170105
  Transmission Date: 20170428
  Serious: Yes (Hospitalization)
  Sender: FDA-Public Use
  Company Number: US-CIPLA LTD.-2016US23955

PATIENT

DRUGS (5)
  1. PROPOFOL. [Suspect]
     Active Substance: PROPOFOL
     Dosage: UNK
     Route: 041
  2. LORAZEPAM. [Suspect]
     Active Substance: LORAZEPAM
     Indication: SEIZURE
     Dosage: UNK
     Route: 065
  3. BUPROPION. [Suspect]
     Active Substance: BUPROPION
     Dosage: 150 MG, 60 TABS
     Route: 048
  4. PHENOBARBITAL. [Suspect]
     Active Substance: PHENOBARBITAL
     Indication: SEIZURE
     Dosage: 20 MG/KG, UNK
     Route: 065
  5. PROPOFOL. [Suspect]
     Active Substance: PROPOFOL
     Indication: SEIZURE
     Dosage: UNK

REACTIONS (8)
  - Intentional overdose [Unknown]
  - Compartment syndrome [Unknown]
  - Cardiomyopathy [Unknown]
  - Status epilepticus [Recovered/Resolved]
  - Cardiac arrest [Unknown]
  - Electrocardiogram QRS complex prolonged [Unknown]
  - Cardiogenic shock [Unknown]
  - Rhabdomyolysis [Unknown]
